FAERS Safety Report 20322939 (Version 1)
Quarter: 2022Q1

REPORT INFORMATION
  Report Type: Spontaneous
  Country: DK (occurrence: DK)
  Receive Date: 20220111
  Receipt Date: 20220111
  Transmission Date: 20220423
  Serious: Yes (Other)
  Sender: FDA-Public Use
  Company Number: None

PATIENT
  Age: 72 Year
  Sex: Male

DRUGS (1)
  1. SILDENAFIL [Suspect]
     Active Substance: SILDENAFIL
     Indication: Erectile dysfunction
     Dosage: STRENGTH: 100 MG,UNIT DOSE:100MG,ADDITIONAL INFORMATION:UNKNOWN START DATE.
     Route: 048

REACTIONS (2)
  - Visual impairment [Unknown]
  - Glaucoma [Unknown]
